FAERS Safety Report 4938940-7 (Version None)
Quarter: 2006Q1

REPORT INFORMATION
  Report Type: 
  Country: None (occurrence: None)
  Receive Date: 20060309
  Receipt Date: 20050315
  Transmission Date: 20060701
  Serious: Yes (Hospitalization, Disabling, Other)
  Sender: FDA-Public Use
  Company Number: US-MERCK-0503USA03207

PATIENT
  Age: 55 Year
  Sex: Male
  Weight: 105 kg

DRUGS (8)
  1. VIOXX [Suspect]
     Indication: BACK PAIN
     Route: 048
     Dates: start: 19990901, end: 20010901
  2. VIOXX [Suspect]
     Route: 048
     Dates: start: 19990901, end: 20010901
  3. MOTRIN [Concomitant]
     Route: 065
  4. NAPROXEN [Concomitant]
     Indication: PAIN
     Route: 065
  5. VYTORIN [Concomitant]
     Route: 065
  6. SULAR [Concomitant]
     Route: 065
  7. LISINOPRIL [Concomitant]
     Route: 065
  8. TOPROL-XL [Concomitant]
     Route: 065

REACTIONS (16)
  - ARTERIOSCLEROSIS [None]
  - ARTHROPATHY [None]
  - CARDIAC FAILURE [None]
  - CARDIAC VALVE DISEASE [None]
  - CEREBROVASCULAR ACCIDENT [None]
  - CHEST PAIN [None]
  - CORONARY ARTERY DISEASE [None]
  - HEPATOCELLULAR DAMAGE [None]
  - HYPERTENSION [None]
  - MYOCARDIAL INFARCTION [None]
  - OVERDOSE [None]
  - PALPITATIONS [None]
  - RENAL DISORDER [None]
  - THROMBOSIS [None]
  - ULCER [None]
  - VISUAL DISTURBANCE [None]
